FAERS Safety Report 7349647-3 (Version None)
Quarter: 2011Q1

REPORT INFORMATION
  Report Type: 
  Country: None (occurrence: None)
  Receive Date: 20110314
  Receipt Date: 20100928
  Transmission Date: 20110831
  Serious: No
  Sender: FDA-Public Use
  Company Number: A0884640A

PATIENT
  Sex: Female

DRUGS (1)
  1. AUGMENTIN '125' [Suspect]
     Indication: URINARY TRACT INFECTION

REACTIONS (2)
  - DRUG INEFFECTIVE [None]
  - ADVERSE DRUG REACTION [None]
